FAERS Safety Report 5790999-3 (Version None)
Quarter: 2008Q2

REPORT INFORMATION
  Report Type: 
  Country: None (occurrence: None)
  Receive Date: 20080626
  Receipt Date: 20080226
  Transmission Date: 20081010
  Serious: No
  Sender: FDA-Public Use
  Company Number: A0711899A

PATIENT
  Age: 32 Year
  Sex: Female

DRUGS (1)
  1. ALLI [Suspect]

REACTIONS (5)
  - DIARRHOEA [None]
  - DIZZINESS [None]
  - PRURITUS [None]
  - RASH [None]
  - VOMITING [None]
